FAERS Safety Report 5006158-8 (Version None)
Quarter: 2006Q1

REPORT INFORMATION
  Report Type: 
  Country: None (occurrence: None)
  Receive Date: 20060328
  Receipt Date: 20060125
  Transmission Date: 20060701
  Serious: Yes (Other)
  Sender: FDA-Public Use
  Company Number: K200600105

PATIENT
  Age: 70 Year
  Sex: Male
  Weight: 113.4 kg

DRUGS (13)
  1. ALTACE [Suspect]
     Indication: HYPERTENSION
     Dates: end: 20051106
  2. ALEVE [Suspect]
     Indication: ARTHRITIS
     Dosage: 220 MG, QD, ORAL
     Route: 048
     Dates: start: 20051106, end: 20051106
  3. ECOTRIN (ACETLYSALICYLIC ACID) [Concomitant]
  4. TENORMIN [Concomitant]
  5. PLAVIX [Concomitant]
  6. ZETIA [Concomitant]
  7. TRICOR [Concomitant]
  8. LASIX [Concomitant]
  9. NEURONTIN [Concomitant]
  10. GLUCOTROL [Concomitant]
  11. PREVACID [Concomitant]
  12. DITROPAN XL [Concomitant]
  13. ZOCOR [Concomitant]

REACTIONS (3)
  - HYPERSENSITIVITY [None]
  - PHARYNGEAL OEDEMA [None]
  - SWOLLEN TONGUE [None]
